FAERS Safety Report 6212912-7 (Version None)
Quarter: 2009Q2

REPORT INFORMATION
  Report Type: 
  Country: None (occurrence: None)
  Receive Date: 20090603
  Receipt Date: 20090525
  Transmission Date: 20091009
  Serious: Yes (Hospitalization)
  Sender: FDA-Public Use
  Company Number: FR-AVENTIS-200911969FR

PATIENT
  Age: 91 Year
  Sex: Female

DRUGS (5)
  1. LASILIX FAIBLE [Suspect]
     Route: 048
     Dates: end: 20090219
  2. PREVISCAN                          /00789001/ [Suspect]
     Route: 048
     Dates: end: 20090219
  3. STILNOX                            /00914901/ [Concomitant]
     Indication: INSOMNIA
     Route: 048
  4. AVLOCARDYL [Concomitant]
     Route: 048
  5. PARACETAMOL [Concomitant]
     Indication: PAIN
     Route: 048

REACTIONS (1)
  - EYE HAEMORRHAGE [None]
